FAERS Safety Report 4421260-7 (Version None)
Quarter: 2004Q3

REPORT INFORMATION
  Report Type: 
  Country: None (occurrence: None)
  Receive Date: 20040804
  Receipt Date: 20040720
  Transmission Date: 20050211
  Serious: Yes (Hospitalization)
  Sender: FDA-Public Use
  Company Number: 04P-056-0267832-00

PATIENT
  Age: 4 Year
  Sex: Male
  Weight: 16.6 kg

DRUGS (3)
  1. BIAXIN [Suspect]
     Indication: BRONCHITIS
     Dosage: 2 DOSAGE FORMS
     Dates: start: 20040715, end: 20040720
  2. BECLOMETHASONE DIPROPIONATE [Concomitant]
  3. ALBUTEROL SULFATE [Concomitant]

REACTIONS (4)
  - ABDOMINAL DISTENSION [None]
  - ASTHENIA [None]
  - GENERALISED OEDEMA [None]
  - WEIGHT INCREASED [None]
